FAERS Safety Report 9843581 (Version 1)
Quarter: 2013Q4

REPORT INFORMATION
  Report Type: Spontaneous
  Country: US (occurrence: None)
  Receive Date: 20131223
  Receipt Date: 20131223
  Transmission Date: 20140711
  Serious: No
  Sender: FDA-Public Use
  Company Number: 220304LEO

PATIENT
  Age: 42 Year
  Sex: Female

DRUGS (2)
  1. PICATO (0.015 %, GEL) [Suspect]
     Indication: SKIN DISORDER
     Dosage: (1 IN 1 D), TOPICAL
     Route: 061
     Dates: start: 20130117, end: 20130119
  2. CEPHALEXIN (CEFALEXIN) [Concomitant]

REACTIONS (4)
  - Application site dryness [None]
  - Application site vesicles [None]
  - Application site pain [None]
  - Drug administered at inappropriate site [None]
